FAERS Safety Report 16617309 (Version 1)
Quarter: 2019Q3

REPORT INFORMATION
  Report Type: Spontaneous
  Country: JP (occurrence: JP)
  Receive Date: 20190723
  Receipt Date: 20190723
  Transmission Date: 20191004
  Serious: Yes (Other)
  Sender: FDA-Public Use
  Company Number: JP-PFIZER INC-2019306475

PATIENT
  Age: 3 Year
  Sex: Female

DRUGS (1)
  1. ZITHROMAC 10% [Suspect]
     Active Substance: AZITHROMYCIN ANHYDROUS
     Route: 048

REACTIONS (1)
  - Hypothermia [Unknown]
